FAERS Safety Report 9088438 (Version 4)
Quarter: 2013Q2

REPORT INFORMATION
  Report Type: Spontaneous
  Country: DE (occurrence: DE)
  Receive Date: 20130201
  Receipt Date: 20130507
  Transmission Date: 20140414
  Serious: Yes (Other)
  Sender: FDA-Public Use
  Company Number: DE-B.I. PHARMACEUTICALS,INC./RIDGEFIELD-2013-DE-00218DE

PATIENT
  Age: 81 Year
  Sex: Male
  Weight: 95 kg

DRUGS (4)
  1. PRADAXA [Suspect]
     Indication: ATRIAL FIBRILLATION
     Dosage: 110 MG
     Dates: start: 20121121, end: 20130124
  2. RAMIPRIL [Concomitant]
     Indication: LEFT VENTRICULAR DYSFUNCTION
     Dosage: 5 MG
     Dates: start: 20121121
  3. METOPROLOL [Concomitant]
     Indication: ATRIAL FIBRILLATION
     Dosage: 95 MG
     Dates: start: 20121121
  4. AMLODIPIN [Concomitant]
     Indication: HYPERTENSION
     Dosage: 5 MG
     Dates: start: 20121121

REACTIONS (3)
  - Renal failure [Unknown]
  - Renal impairment [Not Recovered/Not Resolved]
  - Blood creatine increased [Unknown]
